FAERS Safety Report 9815380 (Version 3)
Quarter: 2014Q2

REPORT INFORMATION
  Report Type: Not Available
  Country: CA (occurrence: CA)
  Receive Date: 20140114
  Receipt Date: 20140509
  Transmission Date: 20141212
  Serious: Yes (Hospitalization)
  Sender: FDA-Public Use
  Company Number: CA-BEH-2013039798

PATIENT
  Age: 67 Year
  Sex: Male

DRUGS (6)
  1. PRIVIGEN [Suspect]
     Route: 042
  2. GAMUNEX SINGLE USE VIALS [Suspect]
     Route: 042
  3. GAMUNEX SINGLE USE VIALS [Suspect]
     Route: 042
  4. IGIVNEX [Suspect]
     Route: 042
  5. BENADRYL [Concomitant]
  6. SOLU-MEDROL [Concomitant]

REACTIONS (8)
  - Angina unstable [Unknown]
  - Myocardial infarction [Unknown]
  - Infusion related reaction [Unknown]
  - Feeling abnormal [Unknown]
  - Hypersensitivity [Unknown]
  - Hypertension [Unknown]
  - Pyrexia [Unknown]
  - Rash [Unknown]
